FAERS Safety Report 11053233 (Version 4)
Quarter: 2015Q3

REPORT INFORMATION
  Report Type: Spontaneous
  Country: US (occurrence: US)
  Receive Date: 20150421
  Receipt Date: 20150702
  Transmission Date: 20151125
  Serious: Yes (Other)
  Sender: FDA-Public Use
  Company Number: US-PERRIGO-15US003946

PATIENT
  Age: 64 Year
  Sex: Female
  Weight: 58.96 kg

DRUGS (5)
  1. LICE TREATMENT (PERMETHRIN) [Suspect]
     Active Substance: PERMETHRIN
     Indication: FLEA INFESTATION
  2. LICE TREATMENT (PERMETHRIN) [Suspect]
     Active Substance: PERMETHRIN
     Indication: LICE INFESTATION
     Dosage: 2 OUNCES, SINGLE
     Route: 061
     Dates: start: 20150304, end: 20150304
  3. ABILIFY [Concomitant]
     Active Substance: ARIPIPRAZOLE
     Indication: BIPOLAR DISORDER
     Dosage: 30 MG, QD
     Route: 048
  4. EFFEXOR [Concomitant]
     Active Substance: VENLAFAXINE HYDROCHLORIDE
     Indication: BIPOLAR DISORDER
     Dosage: 150 MG, QD
     Route: 048
  5. LEVOTHYROXINE. [Concomitant]
     Active Substance: LEVOTHYROXINE
     Indication: HYPOTHYROIDISM
     Dosage: UNK, UNK
     Route: 065

REACTIONS (21)
  - Musculoskeletal stiffness [Recovered/Resolved]
  - Application site irritation [Not Recovered/Not Resolved]
  - Eye swelling [Recovered/Resolved]
  - Eczema [Not Recovered/Not Resolved]
  - Dizziness [Not Recovered/Not Resolved]
  - Balance disorder [Not Recovered/Not Resolved]
  - Vision blurred [Recovered/Resolved]
  - Hypoaesthesia [Recovered/Resolved]
  - Head injury [Unknown]
  - Application site nodule [Recovered/Resolved]
  - Alopecia [Not Recovered/Not Resolved]
  - Application site scab [Not Recovered/Not Resolved]
  - Off label use [Recovered/Resolved]
  - Application site ulcer [Recovered/Resolved]
  - Aphthous ulcer [Recovered/Resolved]
  - Lymphadenopathy [Recovered/Resolved]
  - Hair texture abnormal [Not Recovered/Not Resolved]
  - Drug administration error [Recovered/Resolved]
  - Fall [Recovered/Resolved]
  - Wrist fracture [Not Recovered/Not Resolved]
  - Eye discharge [Recovered/Resolved]

NARRATIVE: CASE EVENT DATE: 2015
